FAERS Safety Report 18034994 (Version 1)
Quarter: 2020Q3

REPORT INFORMATION
  Report Type: Spontaneous
  Country: US (occurrence: US)
  Receive Date: 20200715
  Receipt Date: 20200715
  Transmission Date: 20201103
  Serious: No
  Sender: FDA-Public Use
  Company Number: None

PATIENT

DRUGS (2)
  1. PREDNISONE 10 [Suspect]
     Active Substance: PREDNISONE
  2. PROCHLORPERAZINE 10 MG [Suspect]
     Active Substance: PROCHLORPERAZINE

REACTIONS (3)
  - Product dispensing error [None]
  - Wrong product administered [None]
  - Malaise [None]
